FAERS Safety Report 6282168-8 (Version None)
Quarter: 2009Q3

REPORT INFORMATION
  Report Type: 
  Country: None (occurrence: None)
  Receive Date: 20090721
  Receipt Date: 20090721
  Transmission Date: 20100115
  Serious: Yes (Hospitalization)
  Sender: FDA-Public Use
  Company Number: None

PATIENT
  Sex: Female
  Weight: 79.1 kg

DRUGS (2)
  1. CISPLATIN [Suspect]
     Dosage: 90 MG
     Dates: end: 20090612
  2. TAXOL [Suspect]
     Dosage: 243 MG
     Dates: end: 20090612

REACTIONS (4)
  - FEBRILE NEUTROPENIA [None]
  - HAEMOGLOBIN DECREASED [None]
  - HERPES SIMPLEX [None]
  - URINARY TRACT INFECTION STAPHYLOCOCCAL [None]
